FAERS Safety Report 18628254 (Version 1)
Quarter: 2020Q4

REPORT INFORMATION
  Report Type: Spontaneous
  Country: CN (occurrence: CN)
  Receive Date: 20201217
  Receipt Date: 20201217
  Transmission Date: 20210114
  Serious: Yes (Other)
  Sender: FDA-Public Use
  Company Number: CN-PFIZER INC-2020492376

PATIENT
  Age: 30 Year
  Sex: Female
  Weight: 46 kg

DRUGS (1)
  1. METHOTREXATE. [Suspect]
     Active Substance: METHOTREXATE
     Indication: ECTOPIC PREGNANCY
     Dosage: 75 MG, 1X/DAY
     Route: 030
     Dates: start: 20200930, end: 20200930

REACTIONS (5)
  - Erythema [Recovering/Resolving]
  - Dermatitis allergic [Recovering/Resolving]
  - Off label use [Unknown]
  - Skin oedema [Recovering/Resolving]
  - Pruritus [Recovering/Resolving]

NARRATIVE: CASE EVENT DATE: 20200930
